FAERS Safety Report 20407336 (Version 1)
Quarter: 2022Q1

REPORT INFORMATION
  Report Type: Report from Study
  Country: US (occurrence: US)
  Receive Date: 20220131
  Receipt Date: 20220131
  Transmission Date: 20220424
  Serious: No
  Sender: FDA-Public Use
  Company Number: US-BEH-2021136441

PATIENT
  Age: 9 Year
  Sex: Female

DRUGS (2)
  1. HIZENTRA [Suspect]
     Active Substance: HUMAN IMMUNOGLOBULIN G
     Indication: Primary immunodeficiency syndrome
     Dosage: 6 GRAM, QOW
     Route: 058
     Dates: start: 201709
  2. HIZENTRA [Suspect]
     Active Substance: HUMAN IMMUNOGLOBULIN G
     Indication: Immunodeficiency common variable
     Dosage: 6 UNK
     Route: 058
     Dates: start: 202101

REACTIONS (4)
  - Infusion site erythema [Recovering/Resolving]
  - Malaise [Unknown]
  - Dyspnoea [Unknown]
  - Headache [Unknown]

NARRATIVE: CASE EVENT DATE: 20170901
